FAERS Safety Report 20698095 (Version 11)
Quarter: 2023Q4

REPORT INFORMATION
  Report Type: Report from Study
  Country: US (occurrence: US)
  Receive Date: 20220412
  Receipt Date: 20231004
  Transmission Date: 20240110
  Serious: Yes (Hospitalization, Other)
  Sender: FDA-Public Use
  Company Number: US-ABBVIE-22K-163-4354094-00

PATIENT
  Sex: Male
  Weight: 178 kg

DRUGS (8)
  1. VENCLEXTA [Suspect]
     Active Substance: VENETOCLAX
     Indication: Acute myeloid leukaemia
     Dosage: , STRENGTH: 100 MG
     Route: 048
     Dates: start: 202203, end: 202203
  2. VENCLEXTA [Suspect]
     Active Substance: VENETOCLAX
     Indication: Acute myeloid leukaemia
     Dosage: STRENGTH: 100 MG
     Route: 048
     Dates: start: 20220324
  3. VENCLEXTA [Suspect]
     Active Substance: VENETOCLAX
     Indication: Acute myeloid leukaemia
     Dosage: 400 MILLIGRAM?LAST ADMIN DATE-2023
     Route: 048
     Dates: start: 202203
  4. VENCLEXTA [Suspect]
     Active Substance: VENETOCLAX
     Indication: Acute myeloid leukaemia
     Route: 048
  5. VENCLEXTA [Suspect]
     Active Substance: VENETOCLAX
     Indication: Acute myeloid leukaemia
     Route: 048
     Dates: start: 202203, end: 202203
  6. VENCLEXTA [Suspect]
     Active Substance: VENETOCLAX
     Indication: Acute myeloid leukaemia
     Dosage: 300 MILLIGRAM
     Route: 048
     Dates: start: 2023
  7. VENCLEXTA [Suspect]
     Active Substance: VENETOCLAX
     Indication: Acute myeloid leukaemia
     Dosage: 3 TABLET
     Route: 048
     Dates: start: 202203, end: 202203
  8. VIDAZA [Concomitant]
     Active Substance: AZACITIDINE
     Indication: Chemotherapy
     Dosage: FREQUENCY TEXT: 7 DAYS PER MONTH

REACTIONS (15)
  - Haemoglobin decreased [Unknown]
  - Osteoarthritis [Recovering/Resolving]
  - Asthma [Unknown]
  - Gastrooesophageal reflux disease [Unknown]
  - Neutrophil count decreased [Unknown]
  - White blood cell count abnormal [Unknown]
  - Discomfort [Unknown]
  - Arthropathy [Unknown]
  - Constipation [Recovered/Resolved]
  - Arthritis [Unknown]
  - Rotator cuff syndrome [Recovering/Resolving]
  - Platelet count decreased [Unknown]
  - Unevaluable event [Unknown]
  - Platelet count abnormal [Unknown]
  - White blood cell count decreased [Unknown]

NARRATIVE: CASE EVENT DATE: 20220101
